FAERS Safety Report 4364026-9 (Version None)
Quarter: 2004Q2

REPORT INFORMATION
  Report Type: 
  Country: None (occurrence: None)
  Receive Date: 20040525
  Receipt Date: 20040519
  Transmission Date: 20050107
  Serious: Yes (Hospitalization)
  Sender: FDA-Public Use
  Company Number: 200413935US

PATIENT
  Sex: Female

DRUGS (10)
  1. LOVENOX [Suspect]
     Indication: AORTIC VALVE REPLACEMENT
     Route: 058
     Dates: start: 20040508, end: 20040511
  2. LOVENOX [Suspect]
     Indication: ATRIAL FIBRILLATION
     Route: 058
     Dates: start: 20040508, end: 20040511
  3. CARDIZEM [Concomitant]
     Dosage: DOSE: UNK
  4. LANOXIN [Concomitant]
     Dosage: DOSE: UNK
  5. FOSAMAX [Concomitant]
     Dosage: DOSE: UNK
  6. MULTIVITAMINS, PLAIN [Concomitant]
     Dosage: DOSE: UNK
  7. POTASSIUM [Concomitant]
     Dosage: DOSE: UNK
  8. LASIX [Concomitant]
     Dosage: DOSE: UNK
  9. HERBAL ONT [Concomitant]
     Dosage: DOSE: UNK
  10. COUMADIN [Concomitant]
     Dosage: DOSE: NOT PROVIDED

REACTIONS (7)
  - BLOOD GLUCOSE INCREASED [None]
  - EXTRADURAL HAEMATOMA [None]
  - HAEMATOCRIT DECREASED [None]
  - HAEMOGLOBIN DECREASED [None]
  - INTERNATIONAL NORMALISED RATIO DECREASED [None]
  - PLATELET COUNT DECREASED [None]
  - POST PROCEDURAL COMPLICATION [None]
